FAERS Safety Report 4388658-7 (Version None)
Quarter: 2004Q2

REPORT INFORMATION
  Report Type: 
  Country: None (occurrence: None)
  Receive Date: 20040624
  Receipt Date: 20040616
  Transmission Date: 20050107
  Serious: Yes (Death, Other)
  Sender: FDA-Public Use
  Company Number: 2004-02674

PATIENT
  Age: 53 Year
  Sex: Male

DRUGS (1)
  1. LOXAPINE [Suspect]
     Dosage: ORAL
     Route: 048

REACTIONS (4)
  - CARDIO-RESPIRATORY ARREST [None]
  - CONVULSION [None]
  - DRUG TOXICITY [None]
  - MEDICATION ERROR [None]
